FAERS Safety Report 5962997-8 (Version None)
Quarter: 2008Q4

REPORT INFORMATION
  Report Type: 
  Country: None (occurrence: None)
  Receive Date: 20081124
  Receipt Date: 20081120
  Transmission Date: 20090506
  Serious: Yes (Hospitalization)
  Sender: FDA-Public Use
  Company Number: US-BIOGENIDEC-2008BI025018

PATIENT
  Age: 41 Year
  Sex: Female

DRUGS (11)
  1. TYSABRI [Suspect]
     Indication: MULTIPLE SCLEROSIS
     Route: 042
     Dates: start: 20080122, end: 20080911
  2. BACLOFEN [Concomitant]
     Indication: DRUG USE FOR UNKNOWN INDICATION
     Route: 048
  3. COLACE [Concomitant]
     Indication: DRUG USE FOR UNKNOWN INDICATION
     Route: 048
  4. LEXAPRO [Concomitant]
     Indication: DRUG USE FOR UNKNOWN INDICATION
  5. OPANA ER [Concomitant]
     Indication: DRUG USE FOR UNKNOWN INDICATION
  6. AMBIEN [Concomitant]
     Indication: DRUG USE FOR UNKNOWN INDICATION
  7. VALIUM [Concomitant]
     Indication: DRUG USE FOR UNKNOWN INDICATION
  8. COLON HERBAL CLEANSER [Concomitant]
     Indication: DRUG USE FOR UNKNOWN INDICATION
  9. LORTAB [Concomitant]
     Indication: DRUG USE FOR UNKNOWN INDICATION
  10. DILAUDID [Concomitant]
     Indication: DRUG USE FOR UNKNOWN INDICATION
     Route: 048
  11. MOTRIN [Concomitant]
     Indication: DRUG USE FOR UNKNOWN INDICATION

REACTIONS (8)
  - DEPRESSION [None]
  - FIBROMYALGIA [None]
  - HERPES SIMPLEX [None]
  - MULTIPLE SCLEROSIS [None]
  - PAIN [None]
  - PAROTITIS [None]
  - SACROILIITIS [None]
  - THROMBOCYTOPENIA [None]
